FAERS Safety Report 13924612 (Version 1)
Quarter: 2017Q3

REPORT INFORMATION
  Report Type: Spontaneous
  Country: US (occurrence: US)
  Receive Date: 20170831
  Receipt Date: 20170831
  Transmission Date: 20171127
  Serious: No
  Sender: FDA-Public Use
  Company Number: US-009507513-1708USA009043

PATIENT
  Age: 35 Year
  Sex: Female
  Weight: 52.15 kg

DRUGS (1)
  1. NEXPLANON [Suspect]
     Active Substance: ETONOGESTREL
     Indication: CONTRACEPTION
     Dosage: 1 DF,EVERY 3 YEARS
     Route: 059
     Dates: start: 20170530

REACTIONS (4)
  - Menstruation delayed [Recovered/Resolved]
  - Menorrhagia [Unknown]
  - Weight decreased [Unknown]
  - Migraine [Unknown]

NARRATIVE: CASE EVENT DATE: 201706
